FAERS Safety Report 9958060 (Version 2)
Quarter: 2014Q1

REPORT INFORMATION
  Report Type: Report from Study
  Country: US (occurrence: US)
  Receive Date: 20140304
  Receipt Date: 20140304
  Transmission Date: 20141002
  Serious: Yes (Hospitalization)
  Sender: FDA-Public Use
  Company Number: US-ABBVIE-13P-163-1074418-00

PATIENT
  Age: 40 Year
  Sex: Male

DRUGS (7)
  1. HUMIRA [Suspect]
     Indication: CROHN^S DISEASE
     Dates: start: 20121023, end: 20130408
  2. FENTANYL [Concomitant]
     Indication: PAIN
     Dosage: PATCH
  3. HYDROMORPHONE [Concomitant]
     Indication: PAIN
  4. VALIUM [Concomitant]
     Indication: ANXIETY
  5. GABAPENTIN [Concomitant]
     Indication: ANXIETY
     Dosage: 2 TO 3 TIMES DAILY
  6. PRILOSEC [Concomitant]
     Indication: DYSPEPSIA
     Dosage: ONCE DAILY
  7. BENTYL [Concomitant]
     Indication: GASTRIC DISORDER

REACTIONS (6)
  - Crohn^s disease [Recovered/Resolved]
  - Drug ineffective [Recovering/Resolving]
  - Vomiting [Not Recovered/Not Resolved]
  - Diarrhoea [Not Recovered/Not Resolved]
  - Abdominal discomfort [Not Recovered/Not Resolved]
  - Anger [Not Recovered/Not Resolved]
